FAERS Safety Report 5287123-2 (Version None)
Quarter: 2007Q1

REPORT INFORMATION
  Report Type: 
  Country: None (occurrence: None)
  Receive Date: 20070330
  Receipt Date: 20070321
  Transmission Date: 20070707
  Serious: Yes (Hospitalization)
  Sender: FDA-Public Use
  Company Number: 07032063

PATIENT
  Age: 60 Year
  Sex: Female

DRUGS (3)
  1. ETODOLAC [Suspect]
     Dosage: ORAL
     Route: 048
  2. AMOXICILLIN [Suspect]
     Dosage: OTHER
     Route: 050
  3. REBIF [Suspect]
     Dosage: INTRAMUSCULAR
     Route: 030

REACTIONS (4)
  - CHILLS [None]
  - DRUG HYPERSENSITIVITY [None]
  - RASH MACULAR [None]
  - SWELLING FACE [None]
